FAERS Safety Report 21800215 (Version 1)
Quarter: 2022Q4

REPORT INFORMATION
  Report Type: Spontaneous
  Country: US (occurrence: US)
  Receive Date: 20221230
  Receipt Date: 20221230
  Transmission Date: 20230113
  Serious: No
  Sender: FDA-Public Use
  Company Number: US-BoehringerIngelheim-2022-BI-210479

PATIENT
  Age: 70 Year
  Sex: Male

DRUGS (1)
  1. ATROVENT [Suspect]
     Active Substance: IPRATROPIUM BROMIDE
     Indication: Product used for unknown indication
     Dosage: 17 MCG/ACT 2 PUFFS INTO THE LUNGS
     Route: 048

REACTIONS (2)
  - Hypoacusis [Not Recovered/Not Resolved]
  - Ear disorder [Not Recovered/Not Resolved]
